FAERS Safety Report 5601130-9 (Version None)
Quarter: 2008Q1

REPORT INFORMATION
  Report Type: 
  Country: None (occurrence: None)
  Receive Date: 20080108
  Receipt Date: 20070607
  Transmission Date: 20080703
  Serious: Yes (Hospitalization)
  Sender: FDA-Public Use
  Company Number: PERC20070034

PATIENT
  Age: 90 Year
  Sex: Female
  Weight: 63.5036 kg

DRUGS (13)
  1. PERCOCET [Suspect]
     Indication: BREAKTHROUGH PAIN
     Dosage: 1 TAB Q4-6H PRN, PER ORAL
     Route: 048
     Dates: start: 20040121, end: 20040331
  2. OXYCONTIN [Suspect]
     Indication: PAIN
     Dosage: 10 MG, BID, PER ORAL
     Route: 048
     Dates: start: 20040122, end: 20040331
  3. NEURONTIN [Suspect]
     Indication: DEMENTIA
     Dosage: 100 MG, BID, PER ORAL
     Route: 048
     Dates: start: 20031101
  4. ZYPREXA [Suspect]
     Indication: DEMENTIA
     Dosage: 7.5 MG, DAILY, PER ORAL
     Route: 048
     Dates: start: 20031101
  5. REMERON [Suspect]
     Indication: DEMENTIA
     Dosage: PER ORAL
     Route: 048
     Dates: start: 20031101, end: 20060601
  6. ATIVAN [Suspect]
     Indication: DEMENTIA
     Dosage: PER ORAL
     Route: 048
     Dates: start: 20031001, end: 20050101
  7. TYLENOL (CAPLET) [Concomitant]
  8. METFORMIN HCL [Concomitant]
  9. DIGOXIN [Concomitant]
  10. ASPIRIN [Concomitant]
  11. LISINOPRIL [Concomitant]
  12. NITROFURATOIN [Concomitant]
  13. TRUSOPT 2% [Concomitant]

REACTIONS (2)
  - CONSTIPATION [None]
  - MENTAL DISORDER [None]
